FAERS Safety Report 5589673-8 (Version None)
Quarter: 2008Q1

REPORT INFORMATION
  Report Type: 
  Country: None (occurrence: None)
  Receive Date: 20080114
  Receipt Date: 20080103
  Transmission Date: 20080703
  Serious: Yes (Other)
  Sender: FDA-Public Use
  Company Number: B0376995A

PATIENT
  Age: 31 Year
  Sex: Female

DRUGS (5)
  1. PAROXETINE [Suspect]
     Dates: start: 19961120
  2. PROPRANOLOL [Concomitant]
  3. DIAZEPAM [Concomitant]
     Route: 065
     Dates: start: 19961120
  4. MIRTAZAPINE [Concomitant]
     Route: 065
     Dates: start: 20050920
  5. PROTHIADEN [Concomitant]
     Route: 065
     Dates: start: 20020201

REACTIONS (31)
  - ANXIETY [None]
  - CONFUSIONAL STATE [None]
  - DEPERSONALISATION [None]
  - DEPRESSION [None]
  - DIARRHOEA [None]
  - DISTURBANCE IN ATTENTION [None]
  - DIZZINESS [None]
  - DRUG WITHDRAWAL SYNDROME [None]
  - DRY MOUTH [None]
  - DYSKINESIA [None]
  - DYSLEXIA [None]
  - DYSPNOEA [None]
  - EXTRASYSTOLES [None]
  - FEELING ABNORMAL [None]
  - HALLUCINATION [None]
  - HYPERHIDROSIS [None]
  - INTENTIONAL SELF-INJURY [None]
  - LETHARGY [None]
  - MENTAL IMPAIRMENT [None]
  - MENTAL STATUS CHANGES [None]
  - MUSCLE CONTRACTIONS INVOLUNTARY [None]
  - MUSCULOSKELETAL CHEST PAIN [None]
  - NAUSEA [None]
  - OCULAR ICTERUS [None]
  - PALPITATIONS [None]
  - PARAESTHESIA [None]
  - PARANOIA [None]
  - SUICIDAL IDEATION [None]
  - TREMOR [None]
  - VISION BLURRED [None]
  - WEIGHT INCREASED [None]
